FAERS Safety Report 7357290-5 (Version None)
Quarter: 2011Q1

REPORT INFORMATION
  Report Type: 
  Country: None (occurrence: None)
  Receive Date: 20110311
  Receipt Date: 20110311
  Transmission Date: 20110831
  Serious: Yes (Hospitalization)
  Sender: FDA-Public Use
  Company Number: None

PATIENT
  Sex: Male
  Weight: 104.3273 kg

DRUGS (1)
  1. DULERA TABLET [Suspect]
     Indication: CHRONIC OBSTRUCTIVE PULMONARY DISEASE
     Dosage: 2 PUFFS TWICE DAILY INHAL
     Route: 055
     Dates: start: 20110223, end: 20110307

REACTIONS (6)
  - MALAISE [None]
  - MUSCLE TWITCHING [None]
  - DIZZINESS [None]
  - DYSPNOEA [None]
  - ANGINA PECTORIS [None]
  - PAIN IN JAW [None]
